FAERS Safety Report 18338006 (Version 1)
Quarter: 2020Q4

REPORT INFORMATION
  Report Type: Spontaneous
  Country: US (occurrence: US)
  Receive Date: 20201002
  Receipt Date: 20201002
  Transmission Date: 20210113
  Serious: No
  Sender: FDA-Public Use
  Company Number: US-GLAXOSMITHKLINE-US2020191269

PATIENT
  Age: 24 Year
  Sex: Female

DRUGS (1)
  1. ABREVA [Suspect]
     Active Substance: DOCOSANOL
     Indication: ORAL HERPES
     Dosage: UNK
     Dates: start: 20200920, end: 20200920

REACTIONS (3)
  - Oral herpes [Recovering/Resolving]
  - Condition aggravated [Recovering/Resolving]
  - Application site scab [Recovering/Resolving]

NARRATIVE: CASE EVENT DATE: 20200920
